FAERS Safety Report 6547252-X (Version None)
Quarter: 2010Q1

REPORT INFORMATION
  Report Type: 
  Country: None (occurrence: None)
  Receive Date: 20100122
  Receipt Date: 20090105
  Transmission Date: 20100710
  Serious: No
  Sender: FDA-Public Use
  Company Number: US-BAUSCH-2009BL000004

PATIENT
  Age: 15 Year
  Sex: Male

DRUGS (2)
  1. ZYLET [Suspect]
     Indication: CHALAZION
     Route: 047
     Dates: start: 20081204, end: 20081211
  2. ERYTHROMYCIN [Concomitant]

REACTIONS (1)
  - INTRAOCULAR PRESSURE INCREASED [None]
